FAERS Safety Report 21919137 (Version 1)
Quarter: 2023Q1

REPORT INFORMATION
  Report Type: Spontaneous
  Country: US (occurrence: None)
  Receive Date: 20230126
  Receipt Date: 20230126
  Transmission Date: 20230418
  Serious: Yes (Other)
  Sender: FDA-Public Use
  Company Number: None

PATIENT
  Age: 23 Year
  Sex: Female
  Weight: 46.35 kg

DRUGS (1)
  1. PAXLOVID [Suspect]
     Active Substance: NIRMATRELVIR\RITONAVIR
     Indication: COVID-19 treatment
     Dates: start: 20221123, end: 20221128

REACTIONS (6)
  - Bronchitis [None]
  - Sinusitis [None]
  - Viral infection [None]
  - COVID-19 [None]
  - Immune system disorder [None]
  - Illness [None]

NARRATIVE: CASE EVENT DATE: 20221124
